FAERS Safety Report 14517239 (Version 2)
Quarter: 2018Q2

REPORT INFORMATION
  Report Type: Spontaneous
  Country: IT (occurrence: IT)
  Receive Date: 20180212
  Receipt Date: 20180423
  Transmission Date: 20180711
  Serious: Yes (Hospitalization)
  Sender: FDA-Public Use
  Company Number: IT-ROCHE-2068688

PATIENT
  Age: 87 Year
  Sex: Male

DRUGS (1)
  1. RIVOTRIL [Suspect]
     Active Substance: CLONAZEPAM
     Indication: PRODUCT USED FOR UNKNOWN INDICATION
     Dosage: 2.5 MG/ML
     Route: 048
     Dates: start: 20180113, end: 20180113

REACTIONS (3)
  - Intentional self-injury [Unknown]
  - Coma [Unknown]
  - Overdose [Unknown]

NARRATIVE: CASE EVENT DATE: 20180113
